FAERS Safety Report 12114318 (Version 2)
Quarter: 2016Q1

REPORT INFORMATION
  Report Type: Spontaneous
  Country: DE (occurrence: DE)
  Receive Date: 20160225
  Receipt Date: 20160321
  Transmission Date: 20160526
  Serious: Yes (Other)
  Sender: FDA-Public Use
  Company Number: DE-BAYER-2016-036477

PATIENT
  Age: 44 Year
  Sex: Female
  Weight: 62 kg

DRUGS (1)
  1. CIPROFLOXACIN BETAIN [Suspect]
     Active Substance: CIPROFLOXACIN
     Indication: SINUSITIS
     Dosage: 500 MG, BID
     Dates: start: 20160113, end: 20160116

REACTIONS (10)
  - Nausea [Recovering/Resolving]
  - Weight decreased [Recovering/Resolving]
  - Haematochezia [Recovering/Resolving]
  - Arthralgia [Recovering/Resolving]
  - Depression [None]
  - Sleep disorder [Recovering/Resolving]
  - Immunodeficiency [Recovering/Resolving]
  - Gastrointestinal inflammation [Recovering/Resolving]
  - Gastrointestinal fungal infection [Recovering/Resolving]
  - Pain in extremity [Recovering/Resolving]

NARRATIVE: CASE EVENT DATE: 20160113
